FAERS Safety Report 24986097 (Version 1)
Quarter: 2025Q1

REPORT INFORMATION
  Report Type: Report from Study
  Country: CN (occurrence: CN)
  Receive Date: 20250219
  Receipt Date: 20250219
  Transmission Date: 20250408
  Serious: Yes (Hospitalization)
  Sender: ROCHE
  Company Number: CN-ROCHE-10000006953

PATIENT
  Age: 70 Year
  Sex: Male
  Weight: 75 kg

DRUGS (24)
  1. POLATUZUMAB VEDOTIN [Suspect]
     Active Substance: POLATUZUMAB VEDOTIN
     Indication: Diffuse large B-cell lymphoma
     Route: 040
     Dates: start: 20240514, end: 20240514
  2. POLATUZUMAB VEDOTIN [Suspect]
     Active Substance: POLATUZUMAB VEDOTIN
     Route: 040
     Dates: start: 20240719, end: 20240719
  3. POLATUZUMAB VEDOTIN [Suspect]
     Active Substance: POLATUZUMAB VEDOTIN
     Route: 040
     Dates: start: 20241018, end: 20241018
  4. POLATUZUMAB VEDOTIN [Suspect]
     Active Substance: POLATUZUMAB VEDOTIN
     Route: 040
     Dates: start: 20241119, end: 20241119
  5. RITUXIMAB [Suspect]
     Active Substance: RITUXIMAB
     Indication: Diffuse large B-cell lymphoma
     Route: 065
  6. OBINUTUZUMAB [Suspect]
     Active Substance: OBINUTUZUMAB
     Indication: Diffuse large B-cell lymphoma
     Route: 065
     Dates: start: 20240514, end: 20240514
  7. OBINUTUZUMAB [Suspect]
     Active Substance: OBINUTUZUMAB
     Route: 040
     Dates: start: 20240719, end: 20240719
  8. OBINUTUZUMAB [Suspect]
     Active Substance: OBINUTUZUMAB
     Route: 040
     Dates: start: 20241018, end: 20241018
  9. OBINUTUZUMAB [Suspect]
     Active Substance: OBINUTUZUMAB
     Route: 040
     Dates: start: 20240820, end: 20240820
  10. OBINUTUZUMAB [Suspect]
     Active Substance: OBINUTUZUMAB
     Route: 040
     Dates: start: 20241119, end: 20241119
  11. BENDAMUSTINE [Suspect]
     Active Substance: BENDAMUSTINE
     Indication: Diffuse large B-cell lymphoma
     Dosage: SUBSEQUENT DOSE ON 19-JUL-2024.?ON 20-AUG-2024, HE RECEIVED MOST RECENT DOSE OF BENDAMUSTINE PRIOR T
     Route: 040
     Dates: start: 20240514, end: 20240516
  12. BENDAMUSTINE [Suspect]
     Active Substance: BENDAMUSTINE
     Route: 040
     Dates: start: 20241018, end: 20241020
  13. BENDAMUSTINE [Suspect]
     Active Substance: BENDAMUSTINE
     Route: 040
     Dates: start: 20241119, end: 20241121
  14. DEXAMETHASONE [Suspect]
     Active Substance: DEXAMETHASONE
     Indication: Diffuse large B-cell lymphoma
     Route: 040
  15. DEXAMETHASONE [Suspect]
     Active Substance: DEXAMETHASONE
     Route: 040
     Dates: end: 20241119
  16. Levofloxacin sodium chloride inj [Concomitant]
     Route: 040
     Dates: start: 20240924, end: 20240926
  17. potassium chloride sustained-release tablet [Concomitant]
     Route: 048
  18. sodium bicarbonate tablet [Concomitant]
     Route: 048
  19. LACTULOSE [Concomitant]
     Active Substance: LACTULOSE
     Route: 048
  20. trimebutin maleate [Concomitant]
  21. Cefoperazone sodium for injection [Concomitant]
  22. SULBACTAM SODIUM [Concomitant]
     Active Substance: SULBACTAM SODIUM
  23. vitamin K1 injection [Concomitant]
  24. tannic acid ointment [Concomitant]

REACTIONS (2)
  - Pneumonia [Recovered/Resolved]
  - Sepsis [Recovered/Resolved]

NARRATIVE: CASE EVENT DATE: 20240521
